FAERS Safety Report 18062691 (Version 1)
Quarter: 2020Q3

REPORT INFORMATION
  Report Type: Spontaneous
  Country: AU (occurrence: AU)
  Receive Date: 20200723
  Receipt Date: 20200723
  Transmission Date: 20201103
  Serious: Yes (Other)
  Sender: FDA-Public Use
  Company Number: NVSC2020AU206920

PATIENT
  Age: 24 Year
  Sex: Female

DRUGS (2)
  1. IVGG [Concomitant]
     Active Substance: HUMAN IMMUNOGLOBULIN G
     Indication: SUSAC^S SYNDROME
     Dosage: 0.4 G/KG, QD
     Route: 065
  2. PREDNISOLONE. [Suspect]
     Active Substance: PREDNISOLONE
     Indication: SUSAC^S SYNDROME
     Dosage: 40 MG, UNKNOWN
     Route: 048

REACTIONS (3)
  - Product use in unapproved indication [Unknown]
  - Susac^s syndrome [Recovered/Resolved]
  - Maternal exposure during pregnancy [Unknown]
